FAERS Safety Report 7853937-5 (Version None)
Quarter: 2011Q4

REPORT INFORMATION
  Report Type: 
  Country: None (occurrence: None)
  Receive Date: 20111026
  Receipt Date: 20111025
  Transmission Date: 20120403
  Serious: Yes (Other)
  Sender: FDA-Public Use
  Company Number: US-PFIZER INC-2011260393

PATIENT
  Sex: Male
  Weight: 136 kg

DRUGS (2)
  1. CELEBREX [Suspect]
     Indication: PAIN
     Dosage: 200 MG, 1X/DAY
     Route: 048
  2. LOSARTAN [Concomitant]
     Indication: HYPERTENSION
     Dosage: UNK

REACTIONS (1)
  - HYPERTENSION [None]
